FAERS Safety Report 4808390-2 (Version None)
Quarter: 2005Q4

REPORT INFORMATION
  Report Type: 
  Country: None (occurrence: None)
  Receive Date: 20051021
  Receipt Date: 20030311
  Transmission Date: 20060501
  Serious: No
  Sender: FDA-Public Use
  Company Number: FR_030302151

PATIENT
  Age: 27 Year
  Sex: Male
  Weight: 90 kg

DRUGS (1)
  1. ZYPREXA [Suspect]
     Indication: SCHIZOPHRENIA
     Dosage: 20 MG/DAY
     Dates: start: 20020810

REACTIONS (3)
  - LEUKOPENIA [None]
  - LYMPHOCYTE PERCENTAGE INCREASED [None]
  - NEUTROPENIA [None]
